FAERS Safety Report 9542265 (Version 1)
Quarter: 2013Q2

REPORT INFORMATION
  Report Type: Spontaneous
  Country: US (occurrence: None)
  Receive Date: 20130524
  Receipt Date: 20130524
  Transmission Date: 20140414
  Serious: No
  Sender: FDA-Public Use
  Company Number: PHEH2013US001544

PATIENT
  Sex: Female
  Weight: 65.8 kg

DRUGS (3)
  1. GILENYA (FINGOLIMOD) CAPSULE [Suspect]
     Route: 048
     Dates: start: 20130103
  2. PREMARIN(ESTROGENS CONJUGATED) [Concomitant]
  3. KLONOPIN(CLONAZEPAM) [Concomitant]

REACTIONS (1)
  - Nasopharyngitis [None]
